FAERS Safety Report 4787425-X (Version None)
Quarter: 2005Q4

REPORT INFORMATION
  Report Type: 
  Country: None (occurrence: None)
  Receive Date: 20051003
  Receipt Date: 20050916
  Transmission Date: 20060501
  Serious: Yes (Hospitalization)
  Sender: FDA-Public Use
  Company Number: 2005001809

PATIENT
  Age: 63 Year
  Sex: Male
  Weight: 97 kg

DRUGS (2)
  1. ERLOTINIB HCL (TABLET) (ERLOTINIB HCL) [Suspect]
     Indication: NON-SMALL CELL LUNG CANCER
     Dosage: 150 MG (QD), ORAL
     Route: 048
     Dates: start: 20050822
  2. GLYBURIDE [Suspect]
     Dates: end: 20050912

REACTIONS (3)
  - APHASIA [None]
  - DRUG INTERACTION [None]
  - HYPOGLYCAEMIA [None]
